FAERS Safety Report 7298815-8 (Version None)
Quarter: 2011Q1

REPORT INFORMATION
  Report Type: 
  Country: None (occurrence: None)
  Receive Date: 20110217
  Receipt Date: 20110210
  Transmission Date: 20110831
  Serious: Yes (Hospitalization)
  Sender: FDA-Public Use
  Company Number: IT-B.I. PHARMACEUTICALS,INC./RIDGEFIELD-2011-IT-00014IT

PATIENT
  Sex: Male

DRUGS (9)
  1. ENALAPRIL [Concomitant]
     Dosage: 20 MG
     Route: 048
  2. ACETYLSALICYLIC ACID [Suspect]
     Indication: CARDIOMYOPATHY
     Dosage: 100 MG
     Route: 048
     Dates: start: 20090101, end: 20101107
  3. TICLOPIDINA [Suspect]
     Indication: CARDIOMYOPATHY
     Dosage: 250 MG
     Route: 048
     Dates: start: 20090101, end: 20101107
  4. BISOPROLOLO EMIFUMARATO [Concomitant]
     Dosage: 1.25 MG
     Route: 048
  5. LASIX [Concomitant]
     Dosage: 4 ANZ
     Route: 048
  6. COUMADIN [Suspect]
     Indication: CARDIOMYOPATHY
     Route: 048
     Dates: start: 20090101, end: 20101107
  7. PERSANTIN [Suspect]
     Indication: CARDIOMYOPATHY
     Dosage: 4 POSOLOGIC UNITS
     Route: 048
     Dates: start: 20090101, end: 20101107
  8. PANTOPRAZOLO [Concomitant]
     Dosage: 20 MG
     Route: 048
  9. TRENTAL [Concomitant]
     Dosage: 2 ANZ
     Route: 048

REACTIONS (3)
  - MELAENA [None]
  - ANAEMIA [None]
  - GASTROINTESTINAL HAEMORRHAGE [None]
